FAERS Safety Report 9424418 (Version 1)
Quarter: 2013Q3

REPORT INFORMATION
  Report Type: Spontaneous
  Country: US (occurrence: None)
  Receive Date: 20130725
  Receipt Date: 20130725
  Transmission Date: 20140515
  Serious: Yes (Other)
  Sender: FDA-Public Use
  Company Number: AUR-APL-2013-06059

PATIENT
  Age: 67 Year
  Sex: Male

DRUGS (6)
  1. QUETIAPINE [Suspect]
     Indication: AGGRESSION
     Dosage: 800MG 1D, UNKNOWN
  2. RISPERIDONE [Suspect]
     Indication: AGGRESSION
     Route: 048
  3. TRAZODONE (TRAZODONE) [Concomitant]
  4. MELATONIN (MELATONIN) [Concomitant]
  5. SIMVASTATIN (SIMVASTATIN) [Concomitant]
  6. TEMAZEPAM (TEMAZEPAM) [Concomitant]

REACTIONS (2)
  - Pleurothotonus [None]
  - Aggression [None]
